FAERS Safety Report 4421612-5 (Version None)
Quarter: 2004Q3

REPORT INFORMATION
  Report Type: 
  Country: None (occurrence: None)
  Receive Date: 20040805
  Receipt Date: 20011106
  Transmission Date: 20050211
  Serious: Yes (Death, Hospitalization, Other)
  Sender: FDA-Public Use
  Company Number: JP-JNJFOC-20040600249

PATIENT
  Age: 54 Year
  Sex: Male

DRUGS (1)
  1. PEPCID AC [Suspect]
     Dosage: ORAL
     Route: 048

REACTIONS (2)
  - HEPATIC FAILURE [None]
  - MEDICATION ERROR [None]
